FAERS Safety Report 5524781-9 (Version None)
Quarter: 2007Q4

REPORT INFORMATION
  Report Type: 
  Country: None (occurrence: None)
  Receive Date: 20071116
  Receipt Date: 20071112
  Transmission Date: 20080405
  Serious: Yes (Life-Threatening)
  Sender: FDA-Public Use
  Company Number: 2007-167408-NL

PATIENT
  Age: 82 Year
  Sex: Female

DRUGS (10)
  1. MIRTAZAPINE [Suspect]
     Dosage: ORAL
     Route: 048
     Dates: start: 20061017
  2. ZOPICLONE [Suspect]
     Dosage: ORAL
     Route: 048
     Dates: start: 20060903
  3. HALOPERIDOL [Suspect]
     Dosage: ORAL
     Route: 048
     Dates: start: 20060127, end: 20061106
  4. OLANZAPINE [Suspect]
     Dosage: 10 MG ORAL
     Route: 048
     Dates: start: 20071106
  5. MEMANTINE HCL [Suspect]
     Dosage: 5 MG ORAL
     Route: 048
  6. FERRO SANOL COMP [Suspect]
     Dosage: 2 DF
  7. ACARBOSE [Suspect]
     Dosage: 150 MG ORAL
     Route: 048
  8. DILTIAZEM HYDROCHLORIDE [Suspect]
     Dosage: 180 MG ORAL
     Route: 048
  9. LACTULOSE [Suspect]
     Dosage: DF
     Dates: end: 20070602
  10. ACETYLSALICYLIC ACID SRT [Suspect]
     Dosage: 100 MG ORAL
     Route: 048

REACTIONS (1)
  - GENERAL PHYSICAL HEALTH DETERIORATION [None]
